FAERS Safety Report 26217775 (Version 1)
Quarter: 2025Q4

REPORT INFORMATION
  Report Type: Spontaneous
  Country: US (occurrence: US)
  Receive Date: 20251231
  Receipt Date: 20251231
  Transmission Date: 20260119
  Serious: Yes (Other)
  Sender: SANOFI AVENTIS
  Company Number: US-DialogSolutions-SAAVPROD-PI857191-C1

PATIENT
  Age: 63 Year
  Sex: Male

DRUGS (2)
  1. RASBURICASE [Suspect]
     Active Substance: RASBURICASE
     Indication: Tumour lysis syndrome
     Dosage: 6 MG
     Route: 042
  2. ADENOSINE [Concomitant]
     Active Substance: ADENOSINE
     Indication: Supraventricular tachycardia
     Dosage: UNK

REACTIONS (6)
  - Pulmonary oedema [Unknown]
  - Hyperbilirubinaemia [Unknown]
  - Acute kidney injury [Unknown]
  - Chromaturia [Unknown]
  - Haemolytic anaemia [Recovered/Resolved]
  - Methaemoglobinaemia [Unknown]
